FAERS Safety Report 9667981 (Version 1)
Quarter: 2013Q4

REPORT INFORMATION
  Report Type: Spontaneous
  Country: US (occurrence: US)
  Receive Date: 20131104
  Receipt Date: 20131104
  Transmission Date: 20140711
  Serious: Yes (Death)
  Sender: FDA-Public Use
  Company Number: US-PFIZER INC-2013312454

PATIENT
  Age: 58 Year
  Sex: Male

DRUGS (1)
  1. EPIPEN [Suspect]
     Dosage: 0.3 MG, UNK

REACTIONS (1)
  - Drug effect decreased [Fatal]
